FAERS Safety Report 5384166-5 (Version None)
Quarter: 2007Q3

REPORT INFORMATION
  Report Type: 
  Country: None (occurrence: None)
  Receive Date: 20070711
  Receipt Date: 20070704
  Transmission Date: 20080115
  Serious: Yes (Death, Hospitalization)
  Sender: FDA-Public Use
  Company Number: HQWYE686114SEP06

PATIENT
  Age: 88 Year
  Sex: Female

DRUGS (13)
  1. INIPOMP [Suspect]
     Dosage: ^DF^
     Route: 048
     Dates: start: 20060301
  2. KARDEGIC [Suspect]
     Dosage: ^DF^
     Route: 048
     Dates: start: 20060221
  3. LASIX [Suspect]
     Dosage: ^DF^
     Route: 048
     Dates: start: 20060326
  4. XANAX [Concomitant]
     Indication: PERSONALITY DISORDER
     Dosage: ^DF^
     Route: 048
     Dates: end: 20060405
  5. XANAX [Concomitant]
     Indication: ABNORMAL BEHAVIOUR
  6. CIFLOX [Concomitant]
     Indication: NOSOCOMIAL INFECTION
     Dosage: ^DF^
     Dates: start: 20060320, end: 20060328
  7. ROCEPHIN [Concomitant]
     Indication: NOSOCOMIAL INFECTION
     Dosage: ^DF^
     Dates: start: 20060320, end: 20060409
  8. HEPARIN [Concomitant]
     Indication: PHLEBITIS
     Dosage: ^DF^
     Dates: start: 20060201
  9. HEPARIN [Concomitant]
     Indication: DEEP VEIN THROMBOSIS
  10. FERROUS SULFATE [Concomitant]
     Indication: IRON DEFICIENCY
     Dosage: ^DF^
     Route: 048
     Dates: start: 20051101
  11. PRIMPERAN INJ [Suspect]
     Dosage: ^DF^
     Dates: start: 20060329
  12. RIVOTRIL [Suspect]
     Indication: ANXIETY DISORDER
     Dosage: ^DF^
     Route: 048
     Dates: start: 20060406, end: 20060411
  13. RIVOTRIL [Suspect]
     Indication: ABNORMAL BEHAVIOUR

REACTIONS (4)
  - AGRANULOCYTOSIS [None]
  - C-REACTIVE PROTEIN INCREASED [None]
  - DEATH [None]
  - PYREXIA [None]
